FAERS Safety Report 16040322 (Version 1)
Quarter: 2019Q2

REPORT INFORMATION
  Report Type: Spontaneous
  Country: US (occurrence: US)
  Receive Date: 20190305
  Receipt Date: 20190305
  Transmission Date: 20190711
  Serious: Yes (Life-Threatening, Hospitalization, Disabling)
  Sender: FDA-Public Use
  Company Number: None

PATIENT
  Age: 32 Year
  Sex: Male
  Weight: 58.5 kg

DRUGS (1)
  1. CIPRO [Suspect]
     Active Substance: CIPROFLOXACIN HYDROCHLORIDE
     Indication: PNEUMONIA
     Dosage: ?          QUANTITY:1 TABLET(S);?
     Route: 048

REACTIONS (14)
  - Decreased appetite [None]
  - Heart rate increased [None]
  - Suicidal ideation [None]
  - Anxiety [None]
  - Toxicity to various agents [None]
  - Emotional distress [None]
  - Diarrhoea [None]
  - Vomiting [None]
  - Gastrointestinal disorder [None]
  - Panic attack [None]
  - Fatigue [None]
  - Incoherent [None]
  - Sleep disorder [None]
  - Neuropathy peripheral [None]

NARRATIVE: CASE EVENT DATE: 20141001
